FAERS Safety Report 8189284-4 (Version None)
Quarter: 2012Q1

REPORT INFORMATION
  Report Type: 
  Country: None (occurrence: None)
  Receive Date: 20120302
  Receipt Date: 20120221
  Transmission Date: 20120608
  Serious: Yes (Hospitalization)
  Sender: FDA-Public Use
  Company Number: 1204409

PATIENT
  Age: 1 Year
  Sex: Female

DRUGS (4)
  1. ETOPOSIDE [Suspect]
     Indication: ACUTE MYELOID LEUKAEMIA
     Dosage: NOT REPORTED, UNKNOWN, UNKNOWN
  2. DOXORUBICIN HCL [Suspect]
     Indication: ACUTE MYELOID LEUKAEMIA
     Dosage: NOT REPORTED, UNKNOWN, UNKNOWN
  3. METHOTREXATE [Suspect]
     Indication: ACUTE MYELOID LEUKAEMIA
     Dosage: NOT REPORTED, UNKNOWN, UNKNOWN
  4. CYTARABINE [Suspect]
     Indication: ACUTE MYELOID LEUKAEMIA
     Dosage: NOT REPORTED, UNKNOWN, UNKNOWN

REACTIONS (6)
  - CAECITIS [None]
  - ABDOMINAL PAIN [None]
  - BLOOD CULTURE POSITIVE [None]
  - NAUSEA [None]
  - PSEUDOMONAS TEST POSITIVE [None]
  - NEUTROPENIA [None]
